FAERS Safety Report 20036330 (Version 7)
Quarter: 2022Q2

REPORT INFORMATION
  Report Type: Report from Study
  Country: US (occurrence: US)
  Receive Date: 20211105
  Receipt Date: 20220618
  Transmission Date: 20220721
  Serious: Yes (Hospitalization, Other)
  Sender: FDA-Public Use
  Company Number: US-BIOVITRUM-2021US9544

PATIENT
  Sex: Male

DRUGS (2)
  1. DOPTELET [Suspect]
     Active Substance: AVATROMBOPAG MALEATE
     Indication: Thrombocytopenic purpura
     Route: 048
     Dates: start: 20211015
  2. DOPTELET [Suspect]
     Active Substance: AVATROMBOPAG MALEATE
     Route: 048
     Dates: start: 20211015

REACTIONS (20)
  - Tremor [Unknown]
  - Heart rate increased [Unknown]
  - Pyrexia [Unknown]
  - Myalgia [Unknown]
  - Neuropathy peripheral [Unknown]
  - Myelodysplastic syndrome [Unknown]
  - Swelling [Unknown]
  - Musculoskeletal stiffness [Unknown]
  - Platelet count abnormal [Unknown]
  - Platelet count decreased [Recovering/Resolving]
  - Haemoglobin decreased [Unknown]
  - Red blood cell count decreased [Unknown]
  - Dizziness [Unknown]
  - Ear disorder [Unknown]
  - Tinnitus [Unknown]
  - Head discomfort [Unknown]
  - Headache [Unknown]
  - Irritability [Unknown]
  - Off label use [Unknown]
  - Drug ineffective [Unknown]
